FAERS Safety Report 14458596 (Version 1)
Quarter: 2018Q1

REPORT INFORMATION
  Report Type: Other
  Country: GB (occurrence: GB)
  Receive Date: 20180130
  Receipt Date: 20180130
  Transmission Date: 20180509
  Serious: Yes (Hospitalization)
  Sender: FDA-Public Use
  Company Number: GB-KRKA, D.D., NOVO MESTO-2041078

PATIENT
  Age: 68 Year
  Sex: Male

DRUGS (6)
  1. ENALAPRIL MALEATE. [Suspect]
     Active Substance: ENALAPRIL MALEATE
     Indication: PRODUCT USED FOR UNKNOWN INDICATION
     Route: 048
  2. FUROSEMIDE. [Suspect]
     Active Substance: FUROSEMIDE
     Route: 048
  3. FUROSEMIDE. [Suspect]
     Active Substance: FUROSEMIDE
     Route: 048
  4. CARVEDILOL. [Suspect]
     Active Substance: CARVEDILOL
     Route: 048
  5. CARVEDILOL. [Suspect]
     Active Substance: CARVEDILOL
     Route: 048
  6. EPLERENONE. [Concomitant]
     Active Substance: EPLERENONE
     Route: 065

REACTIONS (5)
  - Oedema peripheral [Recovering/Resolving]
  - Dyspnoea at rest [Recovering/Resolving]
  - Cardiac failure acute [Recovering/Resolving]
  - Condition aggravated [Recovering/Resolving]
  - Renal impairment [Recovering/Resolving]
